FAERS Safety Report 24244987 (Version 7)
Quarter: 2024Q4

REPORT INFORMATION
  Report Type: Spontaneous
  Country: US (occurrence: US)
  Receive Date: 20240823
  Receipt Date: 20241115
  Transmission Date: 20250115
  Serious: Yes (Hospitalization, Other)
  Sender: PURDUE
  Company Number: US-PURDUE PHARMA-USA-2024-0311538

PATIENT
  Age: 41 Year
  Sex: Male

DRUGS (7)
  1. OXYCODONE HYDROCHLORIDE [Suspect]
     Active Substance: OXYCODONE HYDROCHLORIDE
     Indication: Pain
     Dosage: UNKNOWN
     Route: 048
     Dates: start: 2008
  2. HYDREA [Suspect]
     Active Substance: HYDROXYUREA
     Indication: Sickle cell disease
     Dosage: UNKNOWN
     Route: 048
     Dates: start: 20150402
  3. HYDREA [Suspect]
     Active Substance: HYDROXYUREA
     Dosage: UNKNOWN
     Route: 048
     Dates: start: 202205
  4. METHADONE [Suspect]
     Active Substance: METHADONE HYDROCHLORIDE
     Indication: Pain
     Dosage: UNKNOWN
     Route: 048
     Dates: start: 2008
  5. FOLIC ACID [Suspect]
     Active Substance: FOLIC ACID
     Indication: Sickle cell disease
     Dosage: UNKNOWN
     Route: 048
     Dates: start: 20120716
  6. OXBRYTA [Suspect]
     Active Substance: VOXELOTOR
     Indication: Sickle cell disease
     Dosage: 500 MILLIGRAM, DAILY (3 UNITS)
     Route: 065
     Dates: start: 20240209
  7. MOTRIN [Suspect]
     Active Substance: IBUPROFEN
     Indication: Pain
     Dosage: UNK
     Route: 065

REACTIONS (11)
  - Sickle cell anaemia with crisis [Not Recovered/Not Resolved]
  - Acute chest syndrome [Recovered/Resolved]
  - Arthralgia [Unknown]
  - Musculoskeletal chest pain [Unknown]
  - Pain in extremity [Unknown]
  - Pain [Recovered/Resolved]
  - Drug dependence [Not Recovered/Not Resolved]
  - Dizziness [Unknown]
  - Intentional product use issue [Unknown]
  - Product use issue [Unknown]
  - Drug withdrawal syndrome [Unknown]

NARRATIVE: CASE EVENT DATE: 20180205
